FAERS Safety Report 20710192 (Version 3)
Quarter: 2022Q4

REPORT INFORMATION
  Report Type: Report from Study
  Country: CA (occurrence: CA)
  Receive Date: 20220414
  Receipt Date: 20221013
  Transmission Date: 20230113
  Serious: Yes (Other)
  Sender: FDA-Public Use
  Company Number: CA-TAKEDA-2022TUS022490

PATIENT
  Age: 22 Year
  Sex: Female

DRUGS (4)
  1. VEDOLIZUMAB [Suspect]
     Active Substance: VEDOLIZUMAB
     Indication: Crohn^s disease
     Dosage: 300 MILLIGRAM
     Route: 042
     Dates: start: 20220315
  2. VEDOLIZUMAB [Suspect]
     Active Substance: VEDOLIZUMAB
     Dosage: 300 MILLIGRAM
     Route: 042
  3. MERCAPTOPURINE [Concomitant]
     Active Substance: MERCAPTOPURINE
     Dosage: UNK
     Dates: start: 202111
  4. VITAMIN D [Concomitant]
     Active Substance: VITAMIN D NOS
     Dosage: 3000 INTERNATIONAL UNIT
     Route: 048

REACTIONS (7)
  - Haematochezia [Unknown]
  - Abdominal pain upper [Not Recovered/Not Resolved]
  - Renal pain [Not Recovered/Not Resolved]
  - Abnormal faeces [Unknown]
  - Faeces soft [Unknown]
  - Aphthous ulcer [Recovered/Resolved]
  - Arthralgia [Unknown]

NARRATIVE: CASE EVENT DATE: 20220331
